FAERS Safety Report 5133789-7 (Version None)
Quarter: 2006Q4

REPORT INFORMATION
  Report Type: 
  Country: None (occurrence: None)
  Receive Date: 20061018
  Receipt Date: 20061010
  Transmission Date: 20070319
  Serious: Yes (Other)
  Sender: FDA-Public Use
  Company Number: 2006123862

PATIENT
  Age: 34 Year
  Sex: Female
  Weight: 90.7194 kg

DRUGS (3)
  1. BENADRYL [Suspect]
     Indication: DERMATITIS CONTACT
     Dosage: 2 TABLETS EVERY 6 HOURS, 4 TABS AT NIGHT, ORAL
     Route: 048
     Dates: start: 20060901
  2. BENADRYL [Suspect]
     Indication: DERMATITIS CONTACT
     Dosage: ^ENOUGH TO COVER MOST OF HER BODY^, TOPICAL
     Route: 061
     Dates: start: 20060901, end: 20061004
  3. CALADRYL [Suspect]
     Indication: DERMATITIS CONTACT
     Dosage: ^ENOUGH TO COVER MOST OF HER BODY^, TOPICAL
     Route: 061
     Dates: start: 20060901, end: 20061004

REACTIONS (3)
  - CHEMICAL BURN OF SKIN [None]
  - SKIN INFLAMMATION [None]
  - SOMNOLENCE [None]
